FAERS Safety Report 7808806-3 (Version None)
Quarter: 2011Q4

REPORT INFORMATION
  Report Type: 
  Country: None (occurrence: None)
  Receive Date: 20111012
  Receipt Date: 20111004
  Transmission Date: 20120403
  Serious: Yes (Other)
  Sender: FDA-Public Use
  Company Number: PHHY2011FR61289

PATIENT
  Sex: Male
  Weight: 93 kg

DRUGS (3)
  1. CORDARONE [Concomitant]
     Dosage: 1 DF, QD
     Dates: start: 20100401
  2. RASILEZ [Suspect]
     Indication: HYPERTENSION
     Dosage: 150 MG DAILY
     Dates: start: 20110207, end: 20110618
  3. PREVISCAN [Concomitant]
     Dosage: 1 DF, QD
     Dates: start: 20100401

REACTIONS (4)
  - CARDIAC FAILURE ACUTE [None]
  - AGITATION [None]
  - HALLUCINATION [None]
  - OEDEMA [None]
